FAERS Safety Report 7039871-1 (Version None)
Quarter: 2010Q4

REPORT INFORMATION
  Report Type: 
  Country: None (occurrence: None)
  Receive Date: 20101012
  Receipt Date: 20101006
  Transmission Date: 20110411
  Serious: Yes (Other)
  Sender: FDA-Public Use
  Company Number: US-AMGEN-QUU443504

PATIENT
  Sex: Male

DRUGS (11)
  1. ARANESP [Suspect]
     Indication: RENAL FAILURE CHRONIC
  2. ALLOPURINOL [Concomitant]
  3. ATORVASTATIN [Concomitant]
  4. NEXIUM [Concomitant]
  5. FOLIC ACID [Concomitant]
  6. HYDRALAZINE HCL [Concomitant]
  7. FOSRENOL [Concomitant]
  8. KEPPRA [Concomitant]
  9. METOPROLOL TARTRATE [Concomitant]
  10. ZEMPLAR [Concomitant]
  11. TOPAMAX [Concomitant]

REACTIONS (1)
  - MULTIPLE MYELOMA [None]
